FAERS Safety Report 6090984-0 (Version None)
Quarter: 2009Q1

REPORT INFORMATION
  Report Type: 
  Country: None (occurrence: None)
  Receive Date: 20090219
  Receipt Date: 20090219
  Transmission Date: 20090719
  Serious: Yes (Hospitalization)
  Sender: FDA-Public Use
  Company Number: None

PATIENT
  Sex: Female
  Weight: 78.9259 kg

DRUGS (4)
  1. SUCRALFATE [Suspect]
     Indication: GASTRITIS
     Dosage: 1 TAB (GRAM) BID PO
     Route: 048
     Dates: start: 20090206
  2. SUCRALFATE [Suspect]
     Indication: GASTRITIS
     Dosage: 1 TAB (GRAM) BID PO
     Route: 048
     Dates: start: 20090207
  3. SUCRALFATE [Suspect]
     Indication: GASTRITIS
     Dosage: 1 TAB (GRAM) BID PO
     Route: 048
     Dates: start: 20090209
  4. SUCRALFATE [Suspect]
     Indication: GASTRITIS
     Dosage: 1 TAB (GRAM) BID PO
     Route: 048
     Dates: start: 20090210

REACTIONS (1)
  - TRANSIENT ISCHAEMIC ATTACK [None]
